FAERS Safety Report 19277208 (Version 2)
Quarter: 2021Q2

REPORT INFORMATION
  Report Type: Spontaneous
  Country: US (occurrence: US)
  Receive Date: 20210520
  Receipt Date: 20210630
  Transmission Date: 20210717
  Serious: Yes (Other)
  Sender: FDA-Public Use
  Company Number: US-ASTRAZENECA-2021A438430

PATIENT
  Age: 69 Year
  Sex: Female
  Weight: 88.5 kg

DRUGS (1)
  1. BYDUREON BCISE [Suspect]
     Active Substance: EXENATIDE
     Indication: DIABETES MELLITUS
     Route: 058

REACTIONS (8)
  - Weight decreased [Unknown]
  - Device delivery system issue [Unknown]
  - Skin atrophy [Unknown]
  - Illness [Not Recovered/Not Resolved]
  - Decreased activity [Unknown]
  - Wrong technique in device usage process [Unknown]
  - Intestinal obstruction [Not Recovered/Not Resolved]
  - Drug dose omission by device [Unknown]

NARRATIVE: CASE EVENT DATE: 2019
